FAERS Safety Report 24311533 (Version 1)
Quarter: 2024Q3

REPORT INFORMATION
  Report Type: Spontaneous
  Country: PT (occurrence: PT)
  Receive Date: 20240912
  Receipt Date: 20240912
  Transmission Date: 20241017
  Serious: Yes (Death)
  Sender: MYLAN
  Company Number: PT-MYLANLABS-2024M1082259

PATIENT
  Age: 79 Year
  Sex: Male

DRUGS (1)
  1. DEXAMETHASONE [Suspect]
     Active Substance: DEXAMETHASONE
     Indication: Lymphangiosis carcinomatosa
     Dosage: UNK
     Route: 065

REACTIONS (1)
  - Drug ineffective [Fatal]
